FAERS Safety Report 5121795-8 (Version None)
Quarter: 2006Q4

REPORT INFORMATION
  Report Type: 
  Country: None (occurrence: None)
  Receive Date: 20061003
  Receipt Date: 20060920
  Transmission Date: 20070319
  Serious: Yes (Life-Threatening, Hospitalization)
  Sender: FDA-Public Use
  Company Number: 2006-02287

PATIENT
  Sex: Male
  Weight: 79 kg

DRUGS (15)
  1. VELCADE [Suspect]
     Indication: MULTIPLE MYELOMA
     Dosage: 1.30 MG/M2, INTRAVENOUS
     Route: 042
     Dates: start: 20060731, end: 20060803
  2. BENDAMUSTINE (BENDAMUSTIN HYDROCHLORIDE) [Suspect]
     Indication: MULTIPLE MYELOMA
     Dosage: 60.00 MG/M2
     Dates: start: 20060731, end: 20060801
  3. GRANISETRON          (GRANISETRON) [Concomitant]
  4. BUPRENORPHINE HCL [Concomitant]
  5. MIRTAZAPINE [Concomitant]
  6. RED BLOOD CELLS [Concomitant]
  7. BISOPROLOL FUMARATE [Concomitant]
  8. METOCLOPRAMIDE [Concomitant]
  9. ACETAMINOPHEN [Concomitant]
  10. LACTULOSE [Concomitant]
  11. BUPRENORPHINE HCL [Concomitant]
  12. BUPRENORPHINE HCL [Concomitant]
  13. FUROSEMIDE [Concomitant]
  14. HEPARIN [Concomitant]
  15. POTASSIUM CHLORIDE [Concomitant]

REACTIONS (4)
  - EROSIVE DUODENITIS [None]
  - GASTRITIS HAEMORRHAGIC [None]
  - GASTROINTESTINAL HAEMORRHAGE [None]
  - THROMBOCYTOPENIA [None]
